FAERS Safety Report 4816290-7 (Version None)
Quarter: 2005Q4

REPORT INFORMATION
  Report Type: 
  Country: None (occurrence: None)
  Receive Date: 20051028
  Receipt Date: 20051013
  Transmission Date: 20060501
  Serious: Yes (Other)
  Sender: FDA-Public Use
  Company Number: CERZ-11020

PATIENT
  Age: 32 Year
  Sex: Female
  Weight: 56 kg

DRUGS (2)
  1. CEREZYME [Suspect]
     Indication: GAUCHER'S DISEASE
     Dosage: 1800 UNITS Q2WKS IV
     Route: 042
     Dates: start: 20050201
  2. CEREZYME [Suspect]
     Indication: GAUCHER'S DISEASE
     Dosage: 1800 UNITS Q2WKS IV
     Route: 042
     Dates: start: 20010418, end: 20041115

REACTIONS (3)
  - DRUG EXPOSURE DURING PREGNANCY [None]
  - OSTEONECROSIS [None]
  - PREGNANCY [None]
